FAERS Safety Report 9741290 (Version 1)
Quarter: 2013Q4

REPORT INFORMATION
  Report Type: Spontaneous
  Country: US (occurrence: US)
  Receive Date: 20131209
  Receipt Date: 20131209
  Transmission Date: 20140711
  Serious: No
  Sender: FDA-Public Use
  Company Number: US-BIOGENIDEC-2013BI102194

PATIENT
  Age: 64 Year
  Sex: Male

DRUGS (1)
  1. TECFIDERA [Suspect]
     Indication: MULTIPLE SCLEROSIS
     Route: 048
     Dates: start: 201306

REACTIONS (6)
  - Vision blurred [Unknown]
  - Foreign body sensation in eyes [Unknown]
  - Muscular weakness [Unknown]
  - Fall [Unknown]
  - Nocturnal dyspnoea [Unknown]
  - Dyspnoea [Unknown]
